FAERS Safety Report 14449183 (Version 1)
Quarter: 2018Q1

REPORT INFORMATION
  Report Type: Spontaneous
  Country: US (occurrence: US)
  Receive Date: 20180126
  Receipt Date: 20180126
  Transmission Date: 20180509
  Serious: Yes (Other)
  Sender: FDA-Public Use
  Company Number: US-BRISTOL-MYERS SQUIBB COMPANY-BMS-2018-004196

PATIENT
  Sex: Male
  Weight: 131.5 kg

DRUGS (1)
  1. OPDIVO [Suspect]
     Active Substance: NIVOLUMAB
     Indication: METASTATIC MALIGNANT MELANOMA
     Dosage: UNK, Q2WK
     Route: 042

REACTIONS (4)
  - Muscular weakness [Unknown]
  - Fatigue [Unknown]
  - Malignant neoplasm progression [Unknown]
  - Lower respiratory tract infection [Unknown]
